FAERS Safety Report 4978864-2 (Version None)
Quarter: 2006Q2

REPORT INFORMATION
  Report Type: 
  Country: None (occurrence: None)
  Receive Date: 20060417
  Receipt Date: 20060405
  Transmission Date: 20061013
  Serious: Yes (Death, Life-Threatening)
  Sender: FDA-Public Use
  Company Number: 223193

PATIENT
  Age: 40 Year
  Sex: Female
  Weight: 95 kg

DRUGS (28)
  1. MABTHERA (RITUXIMAB) CONC FOR SOLUTION FOR INFUSION [Suspect]
     Indication: DIFFUSE LARGE B-CELL LYMPHOMA
     Dosage: INTRAVENOUS
     Route: 042
     Dates: start: 20060112
  2. MABTHERA (RITUXIMAB) CONC FOR SOLUTION FOR INFUSION [Suspect]
     Indication: DIFFUSE LARGE B-CELL LYMPHOMA
     Dosage: INTRAVENOUS
     Route: 042
     Dates: start: 20060127
  3. DOXORUBICIN HCL [Suspect]
     Indication: DIFFUSE LARGE B-CELL LYMPHOMA
     Dosage: INTRAVENOUS
     Route: 042
     Dates: start: 20060115
  4. ENDOXAN (CYCLOPHOSPHAMIDE) [Concomitant]
  5. VINDESINE (VINDESINE) [Concomitant]
  6. BLEOMYCIN [Concomitant]
  7. SOLU-MEDROL [Concomitant]
  8. METHOTREXATE [Concomitant]
  9. BACTRIM FORTE (SULFAMETHOXAZOLE, TRIMETHROPRIM) [Concomitant]
  10. CEFIXIME CHEWABLE [Concomitant]
  11. CIPROFLOXACIN HCL [Concomitant]
  12. BACTRIM [Concomitant]
  13. SPECIAFOLDINE (FOLIC ACID) [Concomitant]
  14. FLUCONAZOLE [Concomitant]
  15. ZELITREX (VALACICLOVIR) [Concomitant]
  16. OMEPRAZOLE [Concomitant]
  17. ACENOCOUMARIN (ACENOCOUMAROL) [Concomitant]
  18. GRANOCYTE 34 (LENOGRASTIM) [Concomitant]
  19. ALLOPURINOL [Concomitant]
  20. FORTUM (CEFTAZIDIME) [Concomitant]
  21. AMIKIN [Concomitant]
  22. VANCOCIN HCL [Concomitant]
  23. NEUPOGEN [Concomitant]
  24. DIALYSIS (DIALYSIS TREATMENTS AND DEVICES) [Concomitant]
  25. LINEZOLID [Concomitant]
  26. PRIMAXIN [Concomitant]
  27. TAZOCILLINE (PIPERACILLIN SODIUM, TAZOBACTAM) [Concomitant]
  28. VANCOMYCIN HYDROCHLORIDE [Concomitant]

REACTIONS (22)
  - ACUTE RESPIRATORY DISTRESS SYNDROME [None]
  - ANAEMIA [None]
  - AXILLARY VEIN THROMBOSIS [None]
  - BLOOD PRESSURE ABNORMAL [None]
  - BONE MARROW FAILURE [None]
  - CARDIAC ARREST [None]
  - CARDIAC FAILURE [None]
  - COAGULOPATHY [None]
  - DEEP VEIN THROMBOSIS [None]
  - DIALYSIS [None]
  - DYSPNOEA [None]
  - GASTROENTERITIS [None]
  - HYPOVOLAEMIC SHOCK [None]
  - JUGULAR VEIN THROMBOSIS [None]
  - MALAISE [None]
  - NEUTROPENIA [None]
  - PSEUDOMONAS INFECTION [None]
  - RENAL FAILURE [None]
  - SEPSIS [None]
  - SEPTIC SHOCK [None]
  - SUBCLAVIAN VEIN THROMBOSIS [None]
  - THROMBOCYTOPENIA [None]
